FAERS Safety Report 12582022 (Version 1)
Quarter: 2016Q3

REPORT INFORMATION
  Report Type: Report from Study
  Country: US (occurrence: US)
  Receive Date: 20160722
  Receipt Date: 20160722
  Transmission Date: 20161109
  Serious: Yes (Hospitalization, Other)
  Sender: FDA-Public Use
  Company Number: US-AMGEN-USASL2016093958

PATIENT
  Age: 89 Year
  Sex: Female

DRUGS (1)
  1. ENBREL [Suspect]
     Active Substance: ETANERCEPT
     Indication: RHEUMATOID ARTHRITIS
     Dosage: 50 MG, UNK
     Route: 065

REACTIONS (11)
  - Muscular weakness [Unknown]
  - Joint effusion [Unknown]
  - Tendon rupture [Unknown]
  - Cataract operation [Unknown]
  - Bursitis [Unknown]
  - Hypertension [Unknown]
  - Mobility decreased [Unknown]
  - Limb operation [Unknown]
  - Eye disorder [Unknown]
  - Grip strength decreased [Unknown]
  - Tooth infection [Unknown]

NARRATIVE: CASE EVENT DATE: 2016
